FAERS Safety Report 4854295-0 (Version None)
Quarter: 2005Q4

REPORT INFORMATION
  Report Type: 
  Country: None (occurrence: None)
  Receive Date: 20051213
  Receipt Date: 20051213
  Transmission Date: 20060501
  Serious: Yes (Hospitalization)
  Sender: FDA-Public Use
  Company Number: None

PATIENT
  Age: 37 Year
  Sex: Female
  Weight: 50 kg

DRUGS (2)
  1. VENOFER [Suspect]
     Indication: IRON DEFICIENCY ANAEMIA
     Dosage: 500MG  ONE DOSE IV
     Route: 042
     Dates: start: 20040915, end: 20050915
  2. ATENOLOL [Concomitant]

REACTIONS (8)
  - CONVULSION [None]
  - DEHYDRATION [None]
  - DIZZINESS [None]
  - FEELING HOT [None]
  - HEAD INJURY [None]
  - LETHARGY [None]
  - LOSS OF CONSCIOUSNESS [None]
  - TREMOR [None]
